FAERS Safety Report 5826811-3 (Version None)
Quarter: 2008Q3

REPORT INFORMATION
  Report Type: 
  Country: None (occurrence: None)
  Receive Date: 20080728
  Receipt Date: 20080728
  Transmission Date: 20090109
  Serious: No
  Sender: FDA-Public Use
  Company Number: None

PATIENT
  Age: 6 Year
  Sex: Male
  Weight: 53 kg

DRUGS (2)
  1. FOCALIN XR [Suspect]
     Indication: ATTENTION DEFICIT/HYPERACTIVITY DISORDER
     Dosage: 5MG ONCE PER DAY PO
     Route: 048
     Dates: start: 20080630, end: 20080716
  2. ZYRTEC [Concomitant]

REACTIONS (9)
  - AFFECTIVE DISORDER [None]
  - AMNESIA [None]
  - ANXIETY [None]
  - DEPRESSED MOOD [None]
  - FEAR [None]
  - FRUSTRATION [None]
  - HEADACHE [None]
  - MENTAL IMPAIRMENT [None]
  - NERVOUS SYSTEM DISORDER [None]
